FAERS Safety Report 24936376 (Version 1)
Quarter: 2025Q1

REPORT INFORMATION
  Report Type: Spontaneous
  Country: US (occurrence: None)
  Receive Date: 20250206
  Receipt Date: 20250206
  Transmission Date: 20250409
  Serious: Yes (Hospitalization)
  Sender: FDA-CTU
  Company Number: None

PATIENT
  Age: 56 Year
  Sex: Female
  Weight: 55.4 kg

DRUGS (2)
  1. METHOTREXATE [Suspect]
     Active Substance: METHOTREXATE
     Dates: end: 20250129
  2. PONATINIB [Suspect]
     Active Substance: PONATINIB
     Dates: end: 20250106

REACTIONS (3)
  - Hemiparesis [None]
  - Hypoaesthesia [None]
  - Cerebellar microhaemorrhage [None]

NARRATIVE: CASE EVENT DATE: 20250130
